FAERS Safety Report 6368830-7 (Version None)
Quarter: 2009Q3

REPORT INFORMATION
  Report Type: 
  Country: None (occurrence: None)
  Receive Date: 20090922
  Receipt Date: 20090910
  Transmission Date: 20100115
  Serious: Yes (Death, Hospitalization, Other)
  Sender: FDA-Public Use
  Company Number: US-ELI_LILLY_AND_COMPANY-US200705003896

PATIENT
  Sex: Male
  Weight: 82.54 kg

DRUGS (6)
  1. CYMBALTA [Suspect]
     Indication: ANXIETY
     Dosage: 30 MG, DAILY (1/D)
     Dates: start: 20061209, end: 20061215
  2. CYMBALTA [Suspect]
     Dosage: 60 MG, DAILY (1/D)
     Route: 048
     Dates: start: 20061216
  3. AMBIEN [Concomitant]
     Indication: INSOMNIA
     Dosage: 12.5 MG, AS NEEDED
     Dates: start: 20061201, end: 20060101
  4. AMBIEN [Concomitant]
     Dosage: 12.5 MG, AS NEEDED
     Dates: start: 20060101
  5. ETHANOL [Concomitant]
  6. MARIJUANA [Concomitant]

REACTIONS (16)
  - ATELECTASIS [None]
  - BRAIN DEATH [None]
  - BRAIN HERNIATION [None]
  - COAGULOPATHY [None]
  - COMA [None]
  - DIABETES INSIPIDUS [None]
  - GUN SHOT WOUND [None]
  - HAEMOGLOBIN DECREASED [None]
  - NEUROGENIC SHOCK [None]
  - PNEUMOTHORAX [None]
  - RESPIRATORY FAILURE [None]
  - RESPIRATORY TRACT INFECTION [None]
  - SKULL FRACTURE [None]
  - SUBDURAL HAEMATOMA [None]
  - URINARY TRACT INFECTION [None]
  - WHITE BLOOD CELL COUNT INCREASED [None]
